FAERS Safety Report 15749657 (Version 1)
Quarter: 2018Q4

REPORT INFORMATION
  Report Type: Spontaneous
  Country: US (occurrence: US)
  Receive Date: 20181221
  Receipt Date: 20181221
  Transmission Date: 20190205
  Serious: Yes (Other)
  Sender: FDA-Public Use
  Company Number: US-MICRO LABS LIMITED-ML2018-02784

PATIENT
  Age: 32 Year
  Sex: Female

DRUGS (8)
  1. ZYRTEC [Suspect]
     Active Substance: CETIRIZINE HYDROCHLORIDE
     Indication: SYSTEMIC MASTOCYTOSIS
  2. SINGULAIR [Suspect]
     Active Substance: MONTELUKAST SODIUM
     Indication: SYSTEMIC MASTOCYTOSIS
  3. SINGULAIR [Suspect]
     Active Substance: MONTELUKAST SODIUM
     Indication: ANAPHYLACTIC REACTION
  4. ZANTAC [Suspect]
     Active Substance: RANITIDINE HYDROCHLORIDE
     Indication: SYSTEMIC MASTOCYTOSIS
  5. SODIUM CROMOGLICATE [Suspect]
     Active Substance: CROMOLYN SODIUM
     Indication: SYSTEMIC MASTOCYTOSIS
  6. SODIUM CROMOGLICATE [Suspect]
     Active Substance: CROMOLYN SODIUM
     Indication: ANAPHYLACTIC REACTION
  7. ZANTAC [Suspect]
     Active Substance: RANITIDINE HYDROCHLORIDE
     Indication: ANAPHYLACTIC REACTION
  8. ZYRTEC [Suspect]
     Active Substance: CETIRIZINE HYDROCHLORIDE
     Indication: ANAPHYLACTIC REACTION

REACTIONS (1)
  - Therapy non-responder [Unknown]
